FAERS Safety Report 8299276 (Version 4)
Quarter: 2013Q1

REPORT INFORMATION
  Report Type: Report from Study
  Country: DE (occurrence: DE)
  Receive Date: 20111219
  Receipt Date: 20130116
  Transmission Date: 20140127
  Serious: Yes (Death, Hospitalization)
  Sender: FDA-Public Use
  Company Number: DE-ROCHE-1022692

PATIENT
  Sex: Female
  Weight: 78.6 kg

DRUGS (3)
  1. BEVACIZUMAB [Suspect]
     Indication: BREAST CANCER METASTATIC
     Dosage: LAST DOSE PRIOR TO SAE: 09/NOV/2011
     Route: 042
  2. DOCETAXEL [Concomitant]
  3. METFORMIN [Concomitant]
     Indication: DIABETES MELLITUS

REACTIONS (3)
  - General physical health deterioration [Not Recovered/Not Resolved]
  - Cerebral ischaemia [Not Recovered/Not Resolved]
  - Metastases to central nervous system [Fatal]
